FAERS Safety Report 5474279-1 (Version None)
Quarter: 2007Q4

REPORT INFORMATION
  Report Type: 
  Country: None (occurrence: None)
  Receive Date: 20071002
  Receipt Date: 20070625
  Transmission Date: 20080405
  Serious: No
  Sender: FDA-Public Use
  Company Number: US-ASTRAZENECA-2007UW15101

PATIENT
  Age: 66 Year
  Sex: Female
  Weight: 104.3 kg

DRUGS (4)
  1. ARIMIDEX [Suspect]
     Indication: BREAST CANCER RECURRENT
     Route: 048
     Dates: start: 20050101
  2. BLOOD PRESSURE MEDICATION [Concomitant]
  3. CALCIUM PILLS [Concomitant]
  4. VITAMIN PILLS [Concomitant]

REACTIONS (3)
  - DISEASE RECURRENCE [None]
  - DRY MOUTH [None]
  - PHARYNGOLARYNGEAL PAIN [None]
